FAERS Safety Report 9298170 (Version 1)
Quarter: 2013Q2

REPORT INFORMATION
  Report Type: Spontaneous
  Country: US (occurrence: US)
  Receive Date: 20130520
  Receipt Date: 20130520
  Transmission Date: 20140414
  Serious: No
  Sender: FDA-Public Use
  Company Number: US-BAYER-2013-060720

PATIENT
  Sex: Female
  Weight: 65.76 kg

DRUGS (7)
  1. BETASERON [Suspect]
     Dosage: 0.3 MG, QOD
     Route: 058
  2. GABAPENTIN [Concomitant]
     Dosage: 300 MG, UNK
  3. SPIRONOLACTONE [Concomitant]
     Dosage: 100 MG, UNK
  4. HYDROCODONE W/APAP [Concomitant]
     Dosage: 250 MG, UNK
  5. ADDERALL [Concomitant]
     Dosage: 30 MG, UNK
  6. TOPIRAMATE [Concomitant]
     Dosage: 15 MG, UNK
  7. TIZANIDINE [Concomitant]
     Dosage: 2 MG, UNK

REACTIONS (1)
  - Drug ineffective [Unknown]
